FAERS Safety Report 25541734 (Version 2)
Quarter: 2025Q3

REPORT INFORMATION
  Report Type: Spontaneous
  Country: BR (occurrence: BR)
  Receive Date: 20250711
  Receipt Date: 20250815
  Transmission Date: 20251021
  Serious: Yes (Other)
  Sender: NOVO NORDISK
  Company Number: BR-NOVOPROD-1472346

PATIENT
  Age: 42 Year
  Sex: Male
  Weight: 94 kg

DRUGS (10)
  1. WEGOVY [Suspect]
     Active Substance: SEMAGLUTIDE
     Indication: Weight control
     Dates: start: 20250409
  2. WEGOVY [Suspect]
     Active Substance: SEMAGLUTIDE
     Indication: Liver disorder
  3. ALLOPURINOL [Concomitant]
     Active Substance: ALLOPURINOL
  4. ALLOPURINOL [Concomitant]
     Active Substance: ALLOPURINOL
  5. WEGOVY [Suspect]
     Active Substance: SEMAGLUTIDE
     Indication: Weight decreased
     Dates: start: 2025, end: 2025
  6. WEGOVY [Suspect]
     Active Substance: SEMAGLUTIDE
     Indication: Liver disorder
  7. PLENANCE EZE [Concomitant]
  8. LOSARTAN [Concomitant]
     Active Substance: LOSARTAN
  9. AMLODIPINE [Concomitant]
     Active Substance: AMLODIPINE BESYLATE
  10. VITAMIN D NOS [Concomitant]
     Active Substance: CHOLECALCIFEROL\ERGOCALCIFEROL

REACTIONS (3)
  - Joint effusion [Recovering/Resolving]
  - Arthritis [Recovering/Resolving]
  - Gout [Recovering/Resolving]

NARRATIVE: CASE EVENT DATE: 20250101
